FAERS Safety Report 8908215 (Version 50)
Quarter: 2016Q2

REPORT INFORMATION
  Report Type: Report from Study
  Country: CA (occurrence: CA)
  Receive Date: 20121114
  Receipt Date: 20160622
  Transmission Date: 20160815
  Serious: Yes (Other)
  Sender: FDA-Public Use
  Company Number: PHHY2012CA028701

PATIENT
  Age: 66 Year
  Sex: Male

DRUGS (9)
  1. SANDOSTATIN [Suspect]
     Active Substance: OCTREOTIDE ACETATE
     Indication: CARCINOID TUMOUR
     Dosage: 50 UG, ONCE/SINGLE (TEST DOSE)
     Route: 058
     Dates: start: 20120315, end: 20150315
  2. EXJADE [Suspect]
     Active Substance: DEFERASIROX
     Indication: IRON OVERLOAD
     Dosage: 4 DF, QD
     Route: 048
     Dates: start: 20130612, end: 20131220
  3. VITAMIN D [Concomitant]
     Active Substance: CHOLECALCIFEROL
     Indication: PRODUCT USED FOR UNKNOWN INDICATION
     Route: 065
  4. PREVACID [Concomitant]
     Active Substance: LANSOPRAZOLE
     Indication: PRODUCT USED FOR UNKNOWN INDICATION
     Route: 065
  5. SANDOSTATIN LAR DEPOT [Suspect]
     Active Substance: OCTREOTIDE ACETATE
     Indication: CARCINOID TUMOUR
     Dosage: 30 MG, QMO (EVERY 4 WEEKS)
     Route: 030
     Dates: start: 20120328
  6. AZITHROMYCIN ANHYDROUS. [Concomitant]
     Active Substance: AZITHROMYCIN ANHYDROUS
     Indication: PRODUCT USED FOR UNKNOWN INDICATION
     Dosage: FOR 5 DAYS
     Route: 065
  7. IMODIUM [Concomitant]
     Active Substance: LOPERAMIDE HYDROCHLORIDE
     Indication: PRODUCT USED FOR UNKNOWN INDICATION
     Route: 065
  8. LOMOTIL [Concomitant]
     Active Substance: ATROPINE SULFATE\DIPHENOXYLATE HYDROCHLORIDE
     Indication: PRODUCT USED FOR UNKNOWN INDICATION
     Dosage: 20 MG, (2.5 MG, (2 TABLETS 4 TIMES A DAY AS NEEDED))
     Route: 065
  9. MULTIVITAMINS [Concomitant]
     Active Substance: VITAMINS
     Indication: PRODUCT USED FOR UNKNOWN INDICATION
     Route: 065

REACTIONS (43)
  - Sleep disorder [Unknown]
  - Arthralgia [Unknown]
  - Dyspnoea [Unknown]
  - Abdominal pain lower [Not Recovered/Not Resolved]
  - Abdominal neoplasm [Unknown]
  - Lung infection [Recovering/Resolving]
  - Haemoglobin decreased [Not Recovered/Not Resolved]
  - Cough [Recovering/Resolving]
  - Fluid retention [Unknown]
  - Scratch [Unknown]
  - Injection site swelling [Unknown]
  - Second primary malignancy [Unknown]
  - Pigmentation disorder [Unknown]
  - Chills [Unknown]
  - Fatigue [Unknown]
  - Pain [Unknown]
  - Malaise [Unknown]
  - Pyrexia [Unknown]
  - Upper respiratory tract infection [Unknown]
  - Oedema peripheral [Unknown]
  - Paraesthesia [Unknown]
  - Neuropathy peripheral [Unknown]
  - Haemorrhage [Unknown]
  - Platelet count decreased [Not Recovered/Not Resolved]
  - Blood iron increased [Recovering/Resolving]
  - Mass [Unknown]
  - Heart rate decreased [Unknown]
  - Injection site reaction [Unknown]
  - Body temperature increased [Recovering/Resolving]
  - Decreased appetite [Recovering/Resolving]
  - Nodule [Unknown]
  - Pollakiuria [Unknown]
  - Myelofibrosis [Unknown]
  - Splenomegaly [Unknown]
  - Blast cell count increased [Unknown]
  - Weight decreased [Unknown]
  - Myelodysplastic syndrome [Unknown]
  - Hepatomegaly [Unknown]
  - Blood pressure increased [Unknown]
  - Rhinorrhoea [Unknown]
  - Abdominal discomfort [Unknown]
  - Injection site pain [Unknown]
  - Diarrhoea [Unknown]

NARRATIVE: CASE EVENT DATE: 20120913
